FAERS Safety Report 8265456-5 (Version None)
Quarter: 2012Q2

REPORT INFORMATION
  Report Type: 
  Country: None (occurrence: None)
  Receive Date: 20120406
  Receipt Date: 20120330
  Transmission Date: 20120825
  Serious: Yes (Hospitalization, Other)
  Sender: FDA-Public Use
  Company Number: FR-PFIZER INC-2012081154

PATIENT
  Age: 39 Year
  Sex: Female

DRUGS (8)
  1. XANAX [Concomitant]
     Dosage: 0.25 MG, 1 DF PER DAY
     Route: 048
     Dates: start: 20090101, end: 20111119
  2. MAGNE-B6 [Concomitant]
     Dosage: UNK DF, 2X/DAY
     Route: 048
  3. PROGESTOGEL [Concomitant]
     Dosage: 1 DF, 2X/WEEK
  4. FERROUS SULFATE TAB [Concomitant]
     Dosage: UNK DF, 1X/DAY
     Route: 048
  5. MINOXIDIL [Concomitant]
     Dosage: 5% SOLUTION, 1 DF PER DAY
     Route: 061
     Dates: start: 20110901, end: 20111201
  6. EFFEXOR XR [Suspect]
     Dosage: 37.5 MG, 1X/DAY
     Route: 048
     Dates: start: 20110701
  7. ATARAX [Concomitant]
     Dosage: 25 MG, 1 DF PER DAY
     Route: 048
     Dates: start: 20111103, end: 20111119
  8. CYSTINE [Concomitant]
     Dosage: 1 DF, 2X/DAY
     Route: 048

REACTIONS (10)
  - MYALGIA [None]
  - CONVULSION [None]
  - VISUAL IMPAIRMENT [None]
  - VERTIGO [None]
  - TETANY [None]
  - DECREASED APPETITE [None]
  - DRY MOUTH [None]
  - BACK PAIN [None]
  - FATIGUE [None]
  - MUSCLE SPASMS [None]
